FAERS Safety Report 7993013-4 (Version None)
Quarter: 2011Q4

REPORT INFORMATION
  Report Type: 
  Country: None (occurrence: None)
  Receive Date: 20111219
  Receipt Date: 20110201
  Transmission Date: 20120403
  Serious: No
  Sender: FDA-Public Use
  Company Number: US-ASTRAZENECA-2011SE05523

PATIENT
  Age: 66 Year
  Sex: Male
  Weight: 72.6 kg

DRUGS (6)
  1. CRESTOR [Suspect]
     Route: 048
     Dates: start: 20110101
  2. AVODART [Concomitant]
     Indication: PROSTATOMEGALY
  3. CRESTOR [Suspect]
     Indication: HYPERCHOLESTEROLAEMIA
     Route: 048
     Dates: start: 20100101, end: 20110101
  4. CRESTOR [Suspect]
     Indication: HYPERTRIGLYCERIDAEMIA
     Route: 048
     Dates: start: 20100101, end: 20110101
  5. CRESTOR [Suspect]
     Route: 048
     Dates: start: 20110101
  6. FLOMAX [Concomitant]
     Indication: PROSTATOMEGALY

REACTIONS (2)
  - LIPIDS ABNORMAL [None]
  - DRUG INEFFECTIVE [None]
